FAERS Safety Report 8592938-9 (Version None)
Quarter: 2012Q3

REPORT INFORMATION
  Report Type: 
  Country: None (occurrence: None)
  Receive Date: 20120814
  Receipt Date: 20120808
  Transmission Date: 20120928
  Serious: Yes (Hospitalization)
  Sender: FDA-Public Use
  Company Number: US-TEVA-352860USA

PATIENT
  Age: 74 Year
  Sex: Male
  Weight: 66.148 kg

DRUGS (1)
  1. TREANDA [Suspect]
     Indication: CHRONIC LYMPHOCYTIC LEUKAEMIA
     Dosage: EVERY 28 DAYS
     Route: 042
     Dates: start: 20110523

REACTIONS (2)
  - PNEUMONIA [None]
  - PANCYTOPENIA [None]
